FAERS Safety Report 8259518-6 (Version None)
Quarter: 2012Q2

REPORT INFORMATION
  Report Type: 
  Country: None (occurrence: None)
  Receive Date: 20120404
  Receipt Date: 20120326
  Transmission Date: 20120825
  Serious: Yes (Other)
  Sender: FDA-Public Use
  Company Number: FR-FRI-1000028669

PATIENT
  Sex: Male
  Weight: 64 kg

DRUGS (6)
  1. ESCITALOPRAM [Suspect]
     Indication: DEPRESSION
     Dosage: 5 MG
     Route: 048
     Dates: start: 20120202, end: 20120205
  2. CELIPROLOL [Concomitant]
     Indication: HYPERTENSION
     Route: 048
  3. PRAZEPAM [Concomitant]
     Indication: ANXIETY
     Route: 048
  4. AVOCART [Concomitant]
     Indication: PROSTATIC ADENOMA
     Route: 048
  5. ZOLPIDEM [Concomitant]
     Indication: SLEEP DISORDER
     Route: 048
  6. PROPRANOLOL [Concomitant]

REACTIONS (6)
  - HALLUCINATION [None]
  - DISORIENTATION [None]
  - AGITATION [None]
  - IMPAIRED DRIVING ABILITY [None]
  - SUICIDAL IDEATION [None]
  - ANXIETY [None]
